FAERS Safety Report 8341482-2 (Version None)
Quarter: 2012Q2

REPORT INFORMATION
  Report Type: 
  Country: None (occurrence: None)
  Receive Date: 20120507
  Receipt Date: 20120501
  Transmission Date: 20120825
  Serious: Yes (Death)
  Sender: FDA-Public Use
  Company Number: HU-ELI_LILLY_AND_COMPANY-HU201203006838

PATIENT
  Age: 60 Year
  Sex: Female

DRUGS (9)
  1. VITAMIN B-12 [Concomitant]
  2. CHINOTAL [Concomitant]
  3. MALTOFER [Concomitant]
     Dosage: 2 X 1
  4. FOLIC ACID [Concomitant]
  5. METOCLOPRAMIDE [Concomitant]
     Dosage: 3 X 1
  6. PEMETREXED [Suspect]
     Indication: NON-SMALL CELL LUNG CANCER STAGE IV
     Dosage: 700 MG, UNKNOWN
     Route: 042
     Dates: start: 20120321
  7. DIAPREL [Concomitant]
  8. NOOTROPIL [Concomitant]
  9. COVEREX [Concomitant]

REACTIONS (2)
  - RESPIRATORY FAILURE [None]
  - NEOPLASM PROGRESSION [None]
